FAERS Safety Report 24352310 (Version 1)
Quarter: 2024Q3

REPORT INFORMATION
  Report Type: Spontaneous
  Country: US (occurrence: None)
  Receive Date: 20240921
  Receipt Date: 20240921
  Transmission Date: 20241017
  Serious: No
  Sender: Public
  Company Number: None

PATIENT
  Age: 67 Year
  Sex: Female
  Weight: 114.75 kg

DRUGS (7)
  1. ZOLEDRONIC ACID [Suspect]
     Active Substance: ZOLEDRONIC ACID
     Indication: Osteoporosis
     Dosage: OTHER FREQUENCY : YEARLY;?
     Route: 042
     Dates: start: 20240917, end: 20240917
  2. OZEMPIC [Concomitant]
     Active Substance: SEMAGLUTIDE
  3. diabetes testing blood sugars [Concomitant]
  4. ROSUVASTATIN [Concomitant]
     Active Substance: ROSUVASTATIN\ROSUVASTATIN CALCIUM
  5. JWH-018 [Concomitant]
     Active Substance: JWH-018
  6. VITAMIN D3 [Concomitant]
     Active Substance: CHOLECALCIFEROL
  7. CALCIUM [Concomitant]
     Active Substance: CALCIUM

REACTIONS (8)
  - Infusion related reaction [None]
  - Diaphragmalgia [None]
  - Myalgia [None]
  - Musculoskeletal stiffness [None]
  - Painful respiration [None]
  - Diaphragmatic spasm [None]
  - Fatigue [None]
  - Arthralgia [None]

NARRATIVE: CASE EVENT DATE: 20240917
